FAERS Safety Report 26198569 (Version 1)
Quarter: 2025Q4

REPORT INFORMATION
  Report Type: Spontaneous
  Country: US (occurrence: US)
  Receive Date: 20251224
  Receipt Date: 20251224
  Transmission Date: 20260118
  Serious: No
  Sender: ABBVIE
  Company Number: US-ABBVIE-6605297

PATIENT
  Sex: Female

DRUGS (5)
  1. LEXAPRO [Suspect]
     Active Substance: ESCITALOPRAM OXALATE
     Indication: Anxiety
     Dosage: 10MG
     Route: 048
     Dates: start: 2001, end: 2015
  2. LEXAPRO [Suspect]
     Active Substance: ESCITALOPRAM OXALATE
     Indication: Anxiety
     Dosage: 20MG
     Route: 048
     Dates: start: 2015, end: 2025
  3. CELEXA [Suspect]
     Active Substance: CITALOPRAM HYDROBROMIDE
     Indication: Anxiety
     Dosage: 20MG
     Dates: start: 1999, end: 2000
  4. ESCITALOPRAM OXALATE [Suspect]
     Active Substance: ESCITALOPRAM OXALATE
     Indication: Product used for unknown indication
     Dosage: 20MG
  5. ESCITALOPRAM OXALATE [Suspect]
     Active Substance: ESCITALOPRAM OXALATE
     Indication: Product used for unknown indication
     Dosage: 10MG

REACTIONS (15)
  - Visual impairment [Unknown]
  - Vertigo [Unknown]
  - Flatulence [Unknown]
  - Irritability [Unknown]
  - Loss of personal independence in daily activities [Unknown]
  - Abdominal distension [Unknown]
  - Insomnia [Unknown]
  - Weight increased [Unknown]
  - Diarrhoea [Unknown]
  - Breast swelling [Unknown]
  - Fatigue [Unknown]
  - Head discomfort [Unknown]
  - Anger [Unknown]
  - Impatience [Unknown]
  - Blood glucose decreased [Unknown]
